FAERS Safety Report 13597883 (Version 1)
Quarter: 2017Q2

REPORT INFORMATION
  Report Type: Spontaneous
  Country: US (occurrence: US)
  Receive Date: 20170531
  Receipt Date: 20170531
  Transmission Date: 20170830
  Serious: No
  Sender: FDA-Public Use
  Company Number: US-TEVA-767497USA

PATIENT
  Sex: Female

DRUGS (1)
  1. QVAR [Suspect]
     Active Substance: BECLOMETHASONE DIPROPIONATE
     Indication: ASTHMA

REACTIONS (5)
  - Medication residue present [Unknown]
  - Product odour abnormal [Unknown]
  - Asthma [Unknown]
  - Product packaging quantity issue [Unknown]
  - Product quality issue [Unknown]
